FAERS Safety Report 4408606-0 (Version None)
Quarter: 2004Q3

REPORT INFORMATION
  Report Type: 
  Country: None (occurrence: None)
  Receive Date: 20040723
  Receipt Date: 20040713
  Transmission Date: 20050211
  Serious: Yes (Life-Threatening, Hospitalization)
  Sender: FDA-Public Use
  Company Number: 2004223688GB

PATIENT
  Age: 54 Year
  Sex: Male
  Weight: 71 kg

DRUGS (9)
  1. CABERGOLINE [Suspect]
     Indication: RESTLESS LEGS SYNDROME
     Dosage: 0.5 MG/DAY; ORAL
     Route: 048
     Dates: start: 20030320, end: 20030325
  2. ATENOLOL [Concomitant]
  3. FRUSEMIDE [Concomitant]
  4. ISMN [Concomitant]
  5. ATORVASTATIN CALCIUM [Concomitant]
  6. RANITIDINE [Concomitant]
  7. FLUOXETINE [Concomitant]
  8. ASPIRIN [Concomitant]
  9. NITROGLYCERIN [Concomitant]

REACTIONS (8)
  - CARDIAC ARREST [None]
  - CHEST PAIN [None]
  - CIRCULATORY COLLAPSE [None]
  - DYSKINESIA [None]
  - PAROSMIA [None]
  - SENSORY DISTURBANCE [None]
  - SINUS BRADYCARDIA [None]
  - SYNCOPE VASOVAGAL [None]
